FAERS Safety Report 15371094 (Version 5)
Quarter: 2019Q2

REPORT INFORMATION
  Report Type: Report from Study
  Country: US (occurrence: US)
  Receive Date: 20180911
  Receipt Date: 20190528
  Transmission Date: 20190711
  Serious: Yes (Other)
  Sender: FDA-Public Use
  Company Number: US-JNJFOC-20180527201

PATIENT
  Age: 87 Year
  Sex: Male

DRUGS (40)
  1. IMBRUVICA [Suspect]
     Active Substance: IBRUTINIB
     Indication: WALDENSTROM^S MACROGLOBULINAEMIA
     Route: 048
     Dates: start: 20180630, end: 20180810
  2. TAMSULOSIN HYDROCHLORIDE. [Concomitant]
     Active Substance: TAMSULOSIN HYDROCHLORIDE
  3. BENZONATATE. [Concomitant]
     Active Substance: BENZONATATE
  4. VELTRIX [Concomitant]
     Active Substance: LIDOCAINE\MENTHOL
  5. LABETALOL HCL [Concomitant]
     Active Substance: LABETALOL HYDROCHLORIDE
  6. SINGULAIR [Concomitant]
     Active Substance: MONTELUKAST SODIUM
  7. APOAEQUORIN [Concomitant]
  8. DEXTROMETHORPHAN HYDROBROMIDE W/GUAIFENESIN [Concomitant]
     Active Substance: DEXTROMETHORPHAN HYDROBROMIDE\GUAIFENESIN
  9. IMBRUVICA [Suspect]
     Active Substance: IBRUTINIB
     Indication: WALDENSTROM^S MACROGLOBULINAEMIA
     Route: 048
     Dates: start: 20180524, end: 20180629
  10. IMBRUVICA [Suspect]
     Active Substance: IBRUTINIB
     Indication: WALDENSTROM^S MACROGLOBULINAEMIA
     Route: 048
     Dates: start: 20180810
  11. ZOCOR [Concomitant]
     Active Substance: SIMVASTATIN
  12. BIFIDOBACTERIUM LACTIS [Concomitant]
     Active Substance: BIFIDOBACTERIUM ANIMALIS LACTIS
  13. CYANOCOBALAMIN. [Concomitant]
     Active Substance: CYANOCOBALAMIN
  14. SODIUM FLUORIDE. [Concomitant]
     Active Substance: SODIUM FLUORIDE
  15. IMBRUVICA [Suspect]
     Active Substance: IBRUTINIB
     Indication: WALDENSTROM^S MACROGLOBULINAEMIA
     Route: 048
     Dates: start: 20180310, end: 20180523
  16. COQ10 [Concomitant]
     Active Substance: UBIDECARENONE
  17. VITAMIN B [Concomitant]
     Active Substance: VITAMIN B
  18. FLONASE [Concomitant]
     Active Substance: FLUTICASONE PROPIONATE
  19. IMBRUVICA [Suspect]
     Active Substance: IBRUTINIB
     Indication: WALDENSTROM^S MACROGLOBULINAEMIA
     Route: 048
     Dates: start: 20180110, end: 20180309
  20. LOSARTAN. [Concomitant]
     Active Substance: LOSARTAN
  21. ASPIRIN. [Concomitant]
     Active Substance: ASPIRIN
  22. ALLEGRA [Concomitant]
     Active Substance: FEXOFENADINE HYDROCHLORIDE
  23. HCTZ [Concomitant]
     Active Substance: HYDROCHLOROTHIAZIDE
  24. PRILOSEC [Concomitant]
     Active Substance: OMEPRAZOLE MAGNESIUM
  25. MAGNESIUM [Concomitant]
     Active Substance: MAGNESIUM
  26. DEXILANT [Concomitant]
     Active Substance: DEXLANSOPRAZOLE
  27. ARICEPT [Concomitant]
     Active Substance: DONEPEZIL HYDROCHLORIDE
  28. IMBRUVICA [Suspect]
     Active Substance: IBRUTINIB
     Indication: WALDENSTROM^S MACROGLOBULINAEMIA
     Route: 048
     Dates: end: 20180523
  29. COLACE [Concomitant]
     Active Substance: DOCUSATE SODIUM
  30. IMBRUVICA [Suspect]
     Active Substance: IBRUTINIB
     Indication: WALDENSTROM^S MACROGLOBULINAEMIA
     Route: 048
     Dates: start: 20180524, end: 20180629
  31. IMBRUVICA [Suspect]
     Active Substance: IBRUTINIB
     Indication: WALDENSTROM^S MACROGLOBULINAEMIA
     Route: 048
     Dates: start: 20180630, end: 20180809
  32. IMBRUVICA [Suspect]
     Active Substance: IBRUTINIB
     Indication: WALDENSTROM^S MACROGLOBULINAEMIA
     Route: 048
     Dates: start: 20180630, end: 20180810
  33. IMBRUVICA [Suspect]
     Active Substance: IBRUTINIB
     Indication: WALDENSTROM^S MACROGLOBULINAEMIA
     Route: 048
     Dates: start: 20180809, end: 2018
  34. IMBRUVICA [Suspect]
     Active Substance: IBRUTINIB
     Indication: WALDENSTROM^S MACROGLOBULINAEMIA
     Route: 048
     Dates: start: 20180811
  35. COSAMINE [Concomitant]
  36. MULTIVITAMINS [Concomitant]
     Active Substance: VITAMINS
  37. IMBRUVICA [Suspect]
     Active Substance: IBRUTINIB
     Indication: WALDENSTROM^S MACROGLOBULINAEMIA
     Route: 048
     Dates: start: 20180630, end: 20180810
  38. VALACYCLOVIR HCL [Concomitant]
     Active Substance: VALACYCLOVIR HYDROCHLORIDE
  39. AMOXICILLIN. [Concomitant]
     Active Substance: AMOXICILLIN
  40. CURCUMA LONGA RHIZOME [Concomitant]
     Active Substance: HERBALS\TURMERIC

REACTIONS (12)
  - Arthritis [Unknown]
  - Rib fracture [Unknown]
  - Medical procedure [Unknown]
  - Amnesia [Unknown]
  - Off label use [Unknown]
  - Muscle spasms [Not Recovered/Not Resolved]
  - Depression [Unknown]
  - Sepsis [Unknown]
  - Fatigue [Unknown]
  - Cholelithiasis obstructive [Unknown]
  - Incorrect dose administered [Unknown]
  - Cough [Unknown]

NARRATIVE: CASE EVENT DATE: 2018
